FAERS Safety Report 17352322 (Version 2)
Quarter: 2020Q1

REPORT INFORMATION
  Report Type: Spontaneous
  Country: IT (occurrence: IT)
  Receive Date: 20200130
  Receipt Date: 20200214
  Transmission Date: 20200409
  Serious: Yes (Death, Other)
  Sender: FDA-Public Use
  Company Number: IT-AMGEN-ITASP2020012621

PATIENT

DRUGS (2)
  1. FILGRASTIM [Suspect]
     Active Substance: FILGRASTIM
     Indication: PROPHYLAXIS
     Dosage: 5 MICROGRAM/KILOGRAM, QD (DAY 3 AFTER PBSC INFUSION)
     Route: 065
  2. PEGFILGRASTIM [Suspect]
     Active Substance: PEGFILGRASTIM
     Indication: PROPHYLAXIS
     Dosage: 100 MICROGRAM/KILOGRAM (DAY 3 AFTER PBSC INFUSION)
     Route: 065

REACTIONS (4)
  - Malignant neoplasm progression [Fatal]
  - Pyrexia [Unknown]
  - Mucosal inflammation [Unknown]
  - Infection [Unknown]
